FAERS Safety Report 14295695 (Version 1)
Quarter: 2017Q4

REPORT INFORMATION
  Report Type: Spontaneous
  Country: IT (occurrence: IT)
  Receive Date: 20171218
  Receipt Date: 20171218
  Transmission Date: 20180321
  Serious: Yes (Disabling)
  Sender: FDA-Public Use
  Company Number: IT-ROCHE-2037775

PATIENT
  Age: 64 Year
  Sex: Female

DRUGS (8)
  1. TOTALIP [Concomitant]
     Active Substance: ATORVASTATIN
     Route: 065
  2. QUARK [Concomitant]
     Active Substance: RAMIPRIL
     Route: 048
  3. ALIFLUS [Concomitant]
     Active Substance: FLUTICASONE PROPIONATE\SALMETEROL XINAFOATE
     Indication: BRONCHIAL DISORDER
     Dosage: ALIFLUS DISKUS 50 MICROGRAMMI/100 MICROGRAMMI/DOSE DI POL.
     Route: 065
  4. AMIODAR [Concomitant]
     Active Substance: AMIODARONE
     Indication: ARRHYTHMIA
     Route: 065
     Dates: start: 20150601, end: 20171121
  5. DIBASE [Concomitant]
     Active Substance: CHOLECALCIFEROL
     Indication: OSTEOPOROSIS
     Dosage: DIBASE 50.000 U.I./2,5 ML SOLUZIONE ORALE
     Route: 048
     Dates: start: 20160101, end: 20171121
  6. IDROQUARK [Concomitant]
     Active Substance: HYDROCHLOROTHIAZIDE\RAMIPRIL
     Indication: HYPERTENSION
     Dosage: IDROQUARK 5 MG + 25 MG COMPRESSE
     Route: 048
  7. BONVIVA [Suspect]
     Active Substance: IBANDRONATE SODIUM
     Indication: OSTEOPOROSIS
     Route: 048
     Dates: start: 20150501, end: 20150501
  8. XARELTO [Concomitant]
     Active Substance: RIVAROXABAN
     Indication: ATRIAL FIBRILLATION
     Route: 048
     Dates: start: 20150601, end: 20171121

REACTIONS (3)
  - Osteonecrosis of jaw [Unknown]
  - Fistula [Unknown]
  - Oral dysaesthesia [Unknown]

NARRATIVE: CASE EVENT DATE: 20170713
